FAERS Safety Report 10574479 (Version 1)
Quarter: 2014Q4

REPORT INFORMATION
  Report Type: Spontaneous
  Country: US (occurrence: US)
  Receive Date: 20141110
  Receipt Date: 20141110
  Transmission Date: 20150529
  Serious: Yes (Hospitalization)
  Sender: FDA-Public Use
  Company Number: US-GLAXOSMITHKLINE-US2014017425

PATIENT
  Sex: Female

DRUGS (1)
  1. BENLYSTA [Suspect]
     Active Substance: BELIMUMAB
     Indication: SYSTEMIC LUPUS ERYTHEMATOSUS
     Dosage: 10 MG/KG, UNK
     Route: 042

REACTIONS (7)
  - Diarrhoea [Unknown]
  - Influenza [Unknown]
  - Neuralgia [Unknown]
  - Pain of skin [Unknown]
  - Pyrexia [Unknown]
  - Pain [Unknown]
  - Arthralgia [Unknown]
